FAERS Safety Report 21698330 (Version 10)
Quarter: 2023Q4

REPORT INFORMATION
  Report Type: Report from Study
  Country: US (occurrence: US)
  Receive Date: 20221208
  Receipt Date: 20231006
  Transmission Date: 20240110
  Serious: No
  Sender: FDA-Public Use
  Company Number: US-002147023-NVSC2022US282891

PATIENT
  Age: 31 Year
  Sex: Male

DRUGS (1)
  1. KESIMPTA [Suspect]
     Active Substance: OFATUMUMAB
     Indication: Multiple sclerosis
     Dosage: 20 MG, QMO
     Route: 058
     Dates: start: 202211

REACTIONS (3)
  - Gait disturbance [Unknown]
  - Headache [Unknown]
  - Injection site bruising [Recovering/Resolving]

NARRATIVE: CASE EVENT DATE: 20221101
